FAERS Safety Report 18100597 (Version 1)
Quarter: 2020Q3

REPORT INFORMATION
  Report Type: Spontaneous
  Country: DE (occurrence: DE)
  Receive Date: 20200731
  Receipt Date: 20200731
  Transmission Date: 20201103
  Serious: Yes (Other)
  Sender: FDA-Public Use
  Company Number: NVSC2020DE213877

PATIENT
  Sex: Male

DRUGS (1)
  1. PREDNISOLONE. [Suspect]
     Active Substance: PREDNISOLONE
     Indication: CHRONIC GRAFT VERSUS HOST DISEASE
     Dosage: 2.5 MG, QD
     Route: 065

REACTIONS (4)
  - Chronic graft versus host disease [Unknown]
  - Renal failure [Unknown]
  - Product use in unapproved indication [Unknown]
  - Therapy non-responder [Unknown]
